FAERS Safety Report 7053926-7 (Version None)
Quarter: 2010Q4

REPORT INFORMATION
  Report Type: 
  Country: None (occurrence: None)
  Receive Date: 20101020
  Receipt Date: 20101013
  Transmission Date: 20110411
  Serious: Yes (Other)
  Sender: FDA-Public Use
  Company Number: GB-JNJCH-2008003159

PATIENT
  Sex: Male

DRUGS (4)
  1. SUDAFED NON-DROWSY [Suspect]
     Indication: OVERDOSE
     Route: 048
     Dates: start: 20080128, end: 20080128
  2. IBUPROFEN [Suspect]
     Route: 048
     Dates: start: 20080128, end: 20080128
  3. ANTIHISTAMINES [Suspect]
     Dosage: TEXT:3-4 TABLETS
     Route: 048
     Dates: start: 20080128, end: 20080128
  4. ALCOHOL [Suspect]
     Dosage: TEXT:1 L
     Route: 048
     Dates: start: 20080128, end: 20080128

REACTIONS (3)
  - DEHYDRATION [None]
  - OVERDOSE [None]
  - TACHYCARDIA [None]
